FAERS Safety Report 17853986 (Version 1)
Quarter: 2020Q2

REPORT INFORMATION
  Report Type: Spontaneous
  Country: GB (occurrence: GB)
  Receive Date: 20200603
  Receipt Date: 20200603
  Transmission Date: 20200714
  Serious: Yes (Disabling)
  Sender: FDA-Public Use
  Company Number: GB-DEXPHARM-20200453

PATIENT
  Age: 25 Year
  Sex: Male
  Weight: 69.85 kg

DRUGS (3)
  1. DICLOFENAC SODIUM NON DEXCEL PRODUCT [Suspect]
     Active Substance: DICLOFENAC SODIUM
     Indication: PROSTATITIS
     Route: 054
  2. GENERICS UK CO-AMOXICLAV [Concomitant]
     Active Substance: AMOXICILLIN\CLAVULANIC ACID
  3. TRIMETHOPRIM. [Concomitant]
     Active Substance: TRIMETHOPRIM

REACTIONS (2)
  - Joint ankylosis [Recovered/Resolved with Sequelae]
  - Mucous stools [Not Recovered/Not Resolved]
